FAERS Safety Report 6429384-X (Version None)
Quarter: 2009Q4

REPORT INFORMATION
  Report Type: 
  Country: None (occurrence: None)
  Receive Date: 20091105
  Receipt Date: 20090331
  Transmission Date: 20100525
  Serious: Yes (Hospitalization)
  Sender: FDA-Public Use
  Company Number: US-ABBOTT-09P-163-0565705-00

PATIENT
  Sex: Male
  Weight: 76.272 kg

DRUGS (6)
  1. KALETRA [Suspect]
     Indication: HIV INFECTION
     Route: 048
     Dates: start: 20060901
  2. LYRICA [Suspect]
     Indication: NERVE DEGENERATION
     Route: 048
     Dates: start: 20080601
  3. EPIVER [Concomitant]
     Indication: HIV INFECTION
  4. VIREAD [Concomitant]
     Indication: HIV INFECTION
     Route: 048
  5. AZT [Concomitant]
     Indication: HIV INFECTION
     Route: 048
  6. RABIZOL [Concomitant]
     Indication: GASTROOESOPHAGEAL REFLUX DISEASE
     Route: 048

REACTIONS (7)
  - BONE NEOPLASM [None]
  - DYSPNOEA [None]
  - HYPOTENSION [None]
  - INFLUENZA [None]
  - PAIN [None]
  - PHOTOPSIA [None]
  - RETCHING [None]
